FAERS Safety Report 8384468-4 (Version None)
Quarter: 2012Q2

REPORT INFORMATION
  Report Type: 
  Country: None (occurrence: None)
  Receive Date: 20120524
  Receipt Date: 20120521
  Transmission Date: 20120825
  Serious: Yes (Hospitalization)
  Sender: FDA-Public Use
  Company Number: DE-GLAXOSMITHKLINE-B0803497A

PATIENT
  Sex: Female
  Weight: 66 kg

DRUGS (7)
  1. PANTOPRAZOLE [Concomitant]
     Dosage: 20MG PER DAY
     Dates: start: 20120514
  2. PACLITAXEL [Suspect]
     Indication: BREAST CANCER
     Dosage: 146MG WEEKLY
     Route: 042
     Dates: start: 20120430
  3. LAPATINIB [Suspect]
     Indication: BREAST CANCER
     Dosage: 750MG PER DAY
     Route: 048
     Dates: start: 20120430
  4. CARBOPLATIN [Suspect]
     Indication: BREAST CANCER
     Dosage: 260MG WEEKLY
     Route: 042
     Dates: start: 20120430
  5. DOXORUBICIN HCL [Suspect]
     Indication: BREAST CANCER
     Dosage: 37MG WEEKLY
     Route: 042
     Dates: start: 20120430
  6. LOPERAMIDE [Concomitant]
     Dosage: 2MG PER DAY
     Dates: start: 20120501
  7. HERCEPTIN [Suspect]
     Indication: BREAST CANCER
     Dosage: 520MG EVERY 3 WEEKS
     Route: 042
     Dates: start: 20120430

REACTIONS (1)
  - PYREXIA [None]
